FAERS Safety Report 23998632 (Version 1)
Quarter: 2024Q2

REPORT INFORMATION
  Report Type: Spontaneous
  Country: US (occurrence: US)
  Receive Date: 20240621
  Receipt Date: 20240621
  Transmission Date: 20240716
  Serious: No
  Sender: FDA-Public Use
  Company Number: US-GSK-US2024072569

PATIENT
  Age: 69 Year
  Sex: Female

DRUGS (1)
  1. TRELEGY ELLIPTA [Suspect]
     Active Substance: FLUTICASONE FUROATE\UMECLIDINIUM BROMIDE\VILANTEROL TRIFENATATE
     Indication: Asthma
     Dosage: UNK, 100/62.5/25MCG INH 30
     Dates: start: 20230101

REACTIONS (6)
  - COVID-19 [Unknown]
  - Nasopharyngitis [Unknown]
  - Chills [Unknown]
  - Pyrexia [Unknown]
  - Dyspnoea [Unknown]
  - Head discomfort [Unknown]

NARRATIVE: CASE EVENT DATE: 20240527
